FAERS Safety Report 4456193-3 (Version None)
Quarter: 2004Q3

REPORT INFORMATION
  Report Type: 
  Country: None (occurrence: None)
  Receive Date: 20040920
  Receipt Date: 20040914
  Transmission Date: 20050211
  Serious: Yes (Other)
  Sender: FDA-Public Use
  Company Number: 200410762BCA

PATIENT
  Sex: Male

DRUGS (2)
  1. ACETYLSALICYLIC ACID SRT [Suspect]
     Indication: BACK PAIN
     Dosage: SEE IMAGE
     Dates: end: 20030301
  2. ACETYLSALICYLIC ACID SRT [Suspect]
     Indication: BACK PAIN
     Dosage: SEE IMAGE
     Dates: end: 20030501

REACTIONS (5)
  - BLINDNESS TRANSIENT [None]
  - PHARMACEUTICAL PRODUCT COMPLAINT [None]
  - RETINAL DEGENERATION [None]
  - VISUAL ACUITY REDUCED TRANSIENTLY [None]
  - VITREOUS FLOATERS [None]
